FAERS Safety Report 25725026 (Version 1)
Quarter: 2025Q3

REPORT INFORMATION
  Report Type: Spontaneous
  Country: US (occurrence: US)
  Receive Date: 20250826
  Receipt Date: 20250826
  Transmission Date: 20251021
  Serious: No
  Sender: AMNEAL
  Company Number: US-AMNEAL PHARMACEUTICALS-2025-AMRX-02933

PATIENT
  Sex: Male
  Weight: 87.528 kg

DRUGS (3)
  1. CREXONT [Suspect]
     Active Substance: CARBIDOPA\LEVODOPA
     Indication: Parkinson^s disease
     Dosage: 2 CAPSULES, 3X/DAY (87.5/350MG)
     Route: 048
     Dates: start: 20250508
  2. CREXONT [Suspect]
     Active Substance: CARBIDOPA\LEVODOPA
     Dosage: 2 CAPSULES (70/280MG) AND 2 CAPSULE (87.5/350 MG), 4X/DAY
     Route: 048
     Dates: start: 20250729
  3. SERTRALINE [Concomitant]
     Active Substance: SERTRALINE HYDROCHLORIDE
     Indication: Product used for unknown indication
     Dosage: 50 MILLIGRAM, 1 /DAY AT BEDTIME
     Route: 065

REACTIONS (1)
  - Therapeutic response shortened [Recovered/Resolved]
